FAERS Safety Report 5752398-X (Version None)
Quarter: 2008Q2

REPORT INFORMATION
  Report Type: 
  Country: None (occurrence: None)
  Receive Date: 20080529
  Receipt Date: 20080522
  Transmission Date: 20081010
  Serious: Yes (Other)
  Sender: FDA-Public Use
  Company Number: A0730034A

PATIENT
  Sex: Female

DRUGS (1)
  1. AVANDIA [Suspect]
     Dates: start: 19990101, end: 20070601

REACTIONS (2)
  - HEART INJURY [None]
  - MYOCARDIAL INFARCTION [None]
